FAERS Safety Report 7740220-1 (Version None)
Quarter: 2011Q3

REPORT INFORMATION
  Report Type: 
  Country: None (occurrence: None)
  Receive Date: 20110909
  Receipt Date: 20110909
  Transmission Date: 20111222
  Serious: Yes (Life-Threatening, Other)
  Sender: FDA-Public Use
  Company Number: None

PATIENT
  Sex: Female
  Weight: 68.038 kg

DRUGS (3)
  1. FENTANYL-100 [Suspect]
     Indication: PAIN
     Dosage: 50 MCG
     Route: 062
     Dates: start: 20110904, end: 20110905
  2. FENTANYL-100 [Suspect]
     Indication: FRACTURE
     Dosage: 50 MCG
     Route: 062
     Dates: start: 20110904, end: 20110905
  3. FENTANYL-100 [Suspect]
     Indication: NECK INJURY
     Dosage: 50 MCG
     Route: 062
     Dates: start: 20110904, end: 20110905

REACTIONS (10)
  - RETCHING [None]
  - IMPAIRED DRIVING ABILITY [None]
  - SOMNOLENCE [None]
  - APPLICATION SITE RASH [None]
  - ABDOMINAL PAIN UPPER [None]
  - RESTLESSNESS [None]
  - PRURITUS GENERALISED [None]
  - THROAT IRRITATION [None]
  - INSOMNIA [None]
  - VOMITING [None]
